FAERS Safety Report 25418636 (Version 1)
Quarter: 2025Q2

REPORT INFORMATION
  Report Type: Spontaneous
  Country: IN (occurrence: IN)
  Receive Date: 20250610
  Receipt Date: 20250610
  Transmission Date: 20250717
  Serious: Yes (Other)
  Sender: NOVAST LABORATORIES LTD
  Company Number: IN-NOVAST LABORATORIES INC.-2025NOV000236

PATIENT
  Age: 65 Year
  Sex: Female

DRUGS (2)
  1. ACETAZOLAMIDE [Suspect]
     Active Substance: ACETAZOLAMIDE
     Indication: Ocular hypertension
     Route: 065
  2. ACETAZOLAMIDE [Suspect]
     Active Substance: ACETAZOLAMIDE
     Route: 065

REACTIONS (2)
  - Choroidal detachment [Recovering/Resolving]
  - Angle closure glaucoma [Recovering/Resolving]
